FAERS Safety Report 7893649-5 (Version None)
Quarter: 2011Q4

REPORT INFORMATION
  Report Type: 
  Country: None (occurrence: None)
  Receive Date: 20111104
  Receipt Date: 20111021
  Transmission Date: 20120403
  Serious: Yes (Hospitalization)
  Sender: FDA-Public Use
  Company Number: US-VIIV HEALTHCARE LIMITED-B0760108A

PATIENT
  Age: 47 Year
  Sex: Female
  Weight: 92.7 kg

DRUGS (4)
  1. SUSTIVA [Concomitant]
     Indication: HIV INFECTION
     Dosage: 600MG AT NIGHT
     Dates: start: 20081030
  2. MARAVIROC [Suspect]
     Indication: HIV INFECTION
     Dosage: 150MG TWICE PER DAY
     Route: 048
     Dates: start: 20081216
  3. RITONAVIR [Concomitant]
     Indication: HIV INFECTION
     Dosage: 100MG PER DAY
     Dates: start: 20100525
  4. DARUNAVIR ETHANOLATE [Concomitant]
     Indication: HIV INFECTION
     Dosage: 800MG PER DAY
     Dates: start: 20100525

REACTIONS (1)
  - ABDOMINAL SEPSIS [None]
